FAERS Safety Report 7632029-4 (Version None)
Quarter: 2011Q3

REPORT INFORMATION
  Report Type: 
  Country: None (occurrence: None)
  Receive Date: 20110725
  Receipt Date: 20100616
  Transmission Date: 20111222
  Serious: Yes (Hospitalization)
  Sender: FDA-Public Use
  Company Number: US-BRISTOL-MYERS SQUIBB COMPANY-15115389

PATIENT
  Age: 70 Year
  Sex: Female

DRUGS (9)
  1. LETAIRIS [Suspect]
     Indication: PULMONARY ARTERIAL HYPERTENSION
     Route: 048
     Dates: start: 20100414
  2. TADALAFIL [Concomitant]
  3. ASPIRIN [Suspect]
  4. LEVOTHYROXINE SODIUM [Concomitant]
  5. TYLENOL-500 [Concomitant]
  6. COUMADIN [Suspect]
  7. LISINOPRIL [Concomitant]
  8. SPIRONOLACTONE [Concomitant]
  9. MUCINEX [Concomitant]

REACTIONS (2)
  - HAEMOGLOBIN ABNORMAL [None]
  - OCCULT BLOOD POSITIVE [None]
